FAERS Safety Report 7055691-6 (Version None)
Quarter: 2010Q4

REPORT INFORMATION
  Report Type: 
  Country: None (occurrence: None)
  Receive Date: 20101021
  Receipt Date: 20101012
  Transmission Date: 20110411
  Serious: Yes (Hospitalization, Other)
  Sender: FDA-Public Use
  Company Number: GB-JNJFOC-20100808478

PATIENT
  Age: 32 Year
  Sex: Male

DRUGS (9)
  1. RISPERDAL CONSTA [Suspect]
     Indication: DEPRESSION
     Route: 030
  2. RISPERDAL CONSTA [Suspect]
     Route: 030
  3. RISPERDAL CONSTA [Suspect]
     Route: 030
  4. RISPERDAL CONSTA [Suspect]
     Indication: SCHIZOPHRENIA
     Route: 030
  5. RISPERDAL CONSTA [Suspect]
     Route: 030
  6. RISPERDAL CONSTA [Suspect]
     Route: 030
  7. RISPERDAL [Suspect]
     Indication: DEPRESSION
     Route: 048
  8. RISPERDAL [Suspect]
     Indication: SCHIZOPHRENIA
     Route: 048
  9. CITALOPRAM HYDROBROMIDE [Concomitant]
     Indication: PRODUCT USED FOR UNKNOWN INDICATION
     Dosage: 20-60 MG
     Route: 065

REACTIONS (6)
  - BLOOD ALKALINE PHOSPHATASE INCREASED [None]
  - HEPATIC STEATOSIS [None]
  - LIVER DISORDER [None]
  - SUICIDAL IDEATION [None]
  - TRANSAMINASES INCREASED [None]
  - TREATMENT NONCOMPLIANCE [None]
